FAERS Safety Report 8013920-6 (Version None)
Quarter: 2011Q4

REPORT INFORMATION
  Report Type: 
  Country: None (occurrence: None)
  Receive Date: 20111229
  Receipt Date: 20111226
  Transmission Date: 20120403
  Serious: Yes (Death)
  Sender: FDA-Public Use
  Company Number: CN-ROCHE-1025061

PATIENT

DRUGS (4)
  1. METHYLPREDNISOLONE [Concomitant]
     Indication: IMMUNOSUPPRESSION
  2. MYCOPHENOLATE MOFETIL (CELLCEPT) [Suspect]
     Indication: IMMUNOSUPPRESSION
     Route: 048
  3. CYCLOSPORINE [Concomitant]
     Indication: IMMUNOSUPPRESSION
     Route: 048
  4. PREDNISONE TAB [Concomitant]
     Indication: IMMUNOSUPPRESSION
     Route: 048

REACTIONS (2)
  - LUNG INFECTION [None]
  - RESPIRATORY FAILURE [None]
